FAERS Safety Report 8544239-2 (Version None)
Quarter: 2012Q3

REPORT INFORMATION
  Report Type: 
  Country: None (occurrence: None)
  Receive Date: 20120719
  Receipt Date: 20120719
  Transmission Date: 20120928
  Serious: Yes (Life-Threatening, Other)
  Sender: FDA-Public Use
  Company Number: None

PATIENT
  Age: 37 Year
  Sex: Female
  Weight: 61.2356 kg

DRUGS (2)
  1. ZOLPIDEM [Suspect]
  2. ZOLPIDEM [Suspect]
     Indication: SLEEP DISORDER
     Dosage: ONE TABLET NIGHTLY AT BEDTIME PO
     Route: 048
     Dates: start: 20120505, end: 20120716

REACTIONS (5)
  - PAIN IN EXTREMITY [None]
  - SOMNAMBULISM [None]
  - MEMORY IMPAIRMENT [None]
  - ARTHRALGIA [None]
  - CONTUSION [None]
